FAERS Safety Report 9210610 (Version 3)
Quarter: 2013Q4

REPORT INFORMATION
  Report Type: Spontaneous
  Country: US (occurrence: US)
  Receive Date: 20130404
  Receipt Date: 20131127
  Transmission Date: 20140711
  Serious: No
  Sender: FDA-Public Use
  Company Number: US-PFIZER INC-2013105967

PATIENT
  Age: 72 Year
  Sex: Female
  Weight: 92.97 kg

DRUGS (10)
  1. TIKOSYN [Suspect]
     Indication: ATRIAL FIBRILLATION
     Dosage: 500 UG, 2X/DAY
     Route: 048
     Dates: start: 201108
  2. ZOLOFT [Suspect]
     Indication: DEPRESSION
     Dosage: 200 MG (2 TABLETS OF 100MG), 1X/DAY
     Route: 048
  3. ZOLOFT [Suspect]
     Dosage: 250 MG, 1X/DAY
     Route: 048
  4. ZOLOFT [Suspect]
     Dosage: UNK, 1X/DAY
     Route: 048
  5. ASPIRIN [Concomitant]
     Dosage: 325 MG, 1X/DAY
  6. ASPIRIN [Concomitant]
     Dosage: 325 MG, 1X/DAY
  7. SYNTHROID [Concomitant]
     Indication: POSTOPERATIVE CARE
     Dosage: 240 MG, 1X/DAY
  8. XANAX [Concomitant]
     Indication: ANXIETY
     Dosage: UNK
  9. OXYCODONE [Concomitant]
     Indication: PAIN
     Dosage: UNK
  10. LABETALOL [Concomitant]
     Indication: HYPERTENSION
     Dosage: 200 MG, 2X/DAY

REACTIONS (15)
  - Headache [Not Recovered/Not Resolved]
  - Blood magnesium decreased [Unknown]
  - Depression [Not Recovered/Not Resolved]
  - Dysstasia [Not Recovered/Not Resolved]
  - Activities of daily living impaired [Not Recovered/Not Resolved]
  - Fatigue [Not Recovered/Not Resolved]
  - Insomnia [Not Recovered/Not Resolved]
  - Nausea [Not Recovered/Not Resolved]
  - Malaise [Not Recovered/Not Resolved]
  - Nervousness [Unknown]
  - Diarrhoea [Unknown]
  - Hyperhidrosis [Unknown]
  - Feeling hot [Unknown]
  - Flushing [Unknown]
  - Appetite disorder [Unknown]
